FAERS Safety Report 5381214-3 (Version None)
Quarter: 2007Q3

REPORT INFORMATION
  Report Type: 
  Country: None (occurrence: None)
  Receive Date: 20070706
  Receipt Date: 20070627
  Transmission Date: 20080115
  Serious: Yes (Other)
  Sender: FDA-Public Use
  Company Number: GB-PFIZER INC-2007053221

PATIENT
  Age: 31 Year
  Sex: Female

DRUGS (3)
  1. SERTRALINE HYDROCHLORIDE [Suspect]
     Indication: PANIC DISORDER
     Dosage: DAILY DOSE:25MG
  2. ALPRAZOLAM [Suspect]
     Indication: PANIC DISORDER
     Dosage: DAILY DOSE:1MG
  3. PAROXETINE HCL [Suspect]
     Indication: PANIC DISORDER
     Dosage: DAILY DOSE:20MG

REACTIONS (6)
  - AKATHISIA [None]
  - ALCOHOL USE [None]
  - DEPRESSION [None]
  - HOMICIDE [None]
  - OBSESSIVE-COMPULSIVE PERSONALITY DISORDER [None]
  - SUICIDAL IDEATION [None]
